FAERS Safety Report 8990805 (Version 1)
Quarter: 2012Q4

REPORT INFORMATION
  Report Type: Spontaneous
  Country: US (occurrence: None)
  Receive Date: 20121226
  Receipt Date: 20121226
  Transmission Date: 20130627
  Serious: Yes (Hospitalization)
  Sender: FDA-Public Use
  Company Number: None

PATIENT
  Sex: Male
  Weight: 70.5 kg

DRUGS (3)
  1. CETUXIMAB [Suspect]
     Indication: NON-SMALL CELL LUNG CANCER
     Dosage: Cetuximab400mg/m2 week 1 IV
     Route: 042
     Dates: start: 20120927, end: 20121123
  2. CETUXIMAB [Suspect]
     Indication: NON-SMALL CELL LUNG CANCER
     Dosage: Cetuximab250mg/m2 weekly IV
     Route: 042
  3. RIDAFORALIMUS [Suspect]
     Route: 048
     Dates: start: 20120927, end: 20121126

REACTIONS (8)
  - Fatigue [None]
  - Dyspnoea at rest [None]
  - Productive cough [None]
  - Aspiration [None]
  - Pleural effusion [None]
  - Pneumonia aspiration [None]
  - Pneumonia [None]
  - Disease progression [None]
